FAERS Safety Report 21853193 (Version 2)
Quarter: 2023Q1

REPORT INFORMATION
  Report Type: Report from Study
  Country: JP (occurrence: JP)
  Receive Date: 20230112
  Receipt Date: 20230329
  Transmission Date: 20230418
  Serious: No
  Sender: FDA-Public Use
  Company Number: JP-ALNYLAM PHARMACEUTICALS, INC.-ALN-2019-001041

PATIENT

DRUGS (30)
  1. ONPATTRO [Suspect]
     Active Substance: PATISIRAN SODIUM
     Indication: Hereditary neuropathic amyloidosis
     Dosage: 12.5 MILLIGRAM
     Route: 041
     Dates: start: 20191206, end: 20191206
  2. ONPATTRO [Suspect]
     Active Substance: PATISIRAN SODIUM
     Dosage: 12.4 MILLIGRAM, Q3W
     Route: 041
     Dates: start: 20191228, end: 20191228
  3. ONPATTRO [Suspect]
     Active Substance: PATISIRAN SODIUM
     Dosage: 12 MILLIGRAM
     Route: 041
     Dates: start: 20200118, end: 20200411
  4. ONPATTRO [Suspect]
     Active Substance: PATISIRAN SODIUM
     Dosage: 12.4 MILLIGRAM
     Route: 041
     Dates: start: 20200502, end: 20200523
  5. ONPATTRO [Suspect]
     Active Substance: PATISIRAN SODIUM
     Dosage: 13.2 MILLIGRAM
     Route: 041
     Dates: start: 20200613, end: 20210220
  6. ONPATTRO [Suspect]
     Active Substance: PATISIRAN SODIUM
     Dosage: 14 MILLIGRAM
     Route: 041
     Dates: start: 20210313, end: 20210313
  7. ONPATTRO [Suspect]
     Active Substance: PATISIRAN SODIUM
     Dosage: 13.6 MILLIGRAM
     Route: 041
     Dates: start: 20210403, end: 20210515
  8. ONPATTRO [Suspect]
     Active Substance: PATISIRAN SODIUM
     Dosage: 14 MILLIGRAM
     Route: 041
     Dates: start: 20210605, end: 20220122
  9. ONPATTRO [Suspect]
     Active Substance: PATISIRAN SODIUM
     Dosage: 14.4 MILLIGRAM
     Route: 041
     Dates: start: 20220212, end: 20220820
  10. ONPATTRO [Suspect]
     Active Substance: PATISIRAN SODIUM
     Dosage: 15.4 MILLIGRAM
     Route: 041
     Dates: start: 20220910, end: 20221022
  11. ONPATTRO [Suspect]
     Active Substance: PATISIRAN SODIUM
     Dosage: UNK
     Route: 041
     Dates: start: 202211
  12. ONPATTRO [Suspect]
     Active Substance: PATISIRAN SODIUM
     Dosage: 14.8 MILLIGRAM
     Route: 041
     Dates: start: 20221203, end: 20221203
  13. ONPATTRO [Suspect]
     Active Substance: PATISIRAN SODIUM
     Dosage: 15 MILLIGRAM
     Route: 041
     Dates: start: 20221224, end: 20221224
  14. GASTER [Concomitant]
     Active Substance: FAMOTIDINE
     Indication: Prophylaxis
     Dosage: 20 MILLIGRAM, SINGLE
     Route: 065
     Dates: start: 20191206, end: 20191206
  15. FAMOTIDINE [Concomitant]
     Active Substance: FAMOTIDINE
     Indication: Prophylaxis
     Dosage: 20 MILLIGRAM
     Route: 041
     Dates: start: 20191228, end: 20200118
  16. DEXAMETHASONE SODIUM PHOSPHATE [Concomitant]
     Active Substance: DEXAMETHASONE SODIUM PHOSPHATE
     Indication: Prophylaxis
     Dosage: 10 MILLIGRAM, SINGLE
     Route: 065
     Dates: start: 20191206, end: 20191206
  17. DECADRON [Concomitant]
     Active Substance: DEXAMETHASONE
     Indication: Prophylaxis
     Dosage: 3.3 MILLIGRAM, SINGLE
     Route: 041
     Dates: start: 20191228, end: 20221224
  18. ACETAMINOPHEN [Concomitant]
     Active Substance: ACETAMINOPHEN
     Indication: Prophylaxis
     Dosage: 500 MILLIGRAM, SINGLE
     Route: 065
     Dates: start: 20191206, end: 20191206
  19. CALONAL [Concomitant]
     Active Substance: ACETAMINOPHEN
     Indication: Prophylaxis
     Dosage: 500 MILLIGRAM
     Route: 048
     Dates: start: 20191228, end: 20191228
  20. CALONAL [Concomitant]
     Active Substance: ACETAMINOPHEN
     Dosage: 500 MILLIGRAM, SINGLE
     Route: 048
     Dates: start: 20200118, end: 20221224
  21. POLARAMINE [Concomitant]
     Active Substance: DEXCHLORPHENIRAMINE MALEATE
     Indication: Prophylaxis
     Dosage: 5 MILLIGRAM, SINGLE
     Route: 041
     Dates: start: 20191206, end: 20221224
  22. VITAMINS [Concomitant]
     Active Substance: VITAMINS
     Indication: Prophylaxis
     Dosage: 1 GRAM, QD
     Route: 048
     Dates: start: 20191206
  23. PROGRAF [Concomitant]
     Active Substance: TACROLIMUS
     Indication: Prophylaxis against transplant rejection
     Dosage: 0.2 MILLIGRAM, TID
     Route: 048
  24. PROGRAF [Concomitant]
     Active Substance: TACROLIMUS
     Indication: Prophylaxis against transplant rejection
     Dosage: 0.5 MILLIGRAM, BID
     Route: 048
  25. ROXATIDINE ACETATE HYDROCHLORIDE [Concomitant]
     Active Substance: ROXATIDINE ACETATE HYDROCHLORIDE
     Indication: Gastritis
     Dosage: 75 MILLIGRAM, BID
     Route: 048
  26. URSODIOL [Concomitant]
     Active Substance: URSODIOL
     Indication: Liver transplant
     Dosage: 200 MILLIGRAM, BID
     Route: 048
  27. METHYLCOBALAMIN [Concomitant]
     Active Substance: METHYLCOBALAMIN
     Indication: Hereditary neuropathic amyloidosis
     Dosage: 500 MICROGRAM, BID
     Route: 048
  28. DROXIDOPA [Concomitant]
     Active Substance: DROXIDOPA
     Indication: Hereditary neuropathic amyloidosis
     Dosage: 200 MILLIGRAM, TID
     Route: 048
  29. CYANOCOBALAMIN\PYRIDOXINE HYDROCHLORIDE\THIAMINE [Concomitant]
     Active Substance: CYANOCOBALAMIN\PYRIDOXINE HYDROCHLORIDE\THIAMINE
     Indication: Product used for unknown indication
     Dosage: 1.0 MILLIGRAM
     Route: 041
     Dates: start: 20191228, end: 20200118
  30. CALCIUM CHLORIDE ANHYDROUS\POTASSIUM CHLORIDE\SODIUM CHLORIDE\SODIUM L [Concomitant]
     Active Substance: CALCIUM CHLORIDE ANHYDROUS\POTASSIUM CHLORIDE\SODIUM CHLORIDE\SODIUM LACTATE
     Indication: Product used for unknown indication
     Dosage: 500 MILLILITER
     Route: 041
     Dates: start: 20191228, end: 20200118

REACTIONS (6)
  - Infusion related reaction [Recovered/Resolved]
  - Hyperhidrosis [Recovered/Resolved]
  - Skin warm [Recovered/Resolved]
  - Malaise [Recovered/Resolved]
  - Infusion related reaction [Recovered/Resolved]
  - Pyrexia [Recovered/Resolved]

NARRATIVE: CASE EVENT DATE: 20191228
